FAERS Safety Report 17806059 (Version 2)
Quarter: 2020Q2

REPORT INFORMATION
  Report Type: Report from Study
  Country: None (occurrence: US)
  Receive Date: 20200520
  Receipt Date: 20200526
  Transmission Date: 20200714
  Serious: Yes (Hospitalization, Other)
  Sender: FDA-Public Use
  Company Number: US-ABBVIE-20K-163-3405856-00

PATIENT
  Age: 49 Year
  Sex: Female

DRUGS (2)
  1. HUMIRA [Suspect]
     Active Substance: ADALIMUMAB
     Indication: ANKYLOSING SPONDYLITIS
     Dosage: CITRATE FREE
     Route: 058
  2. LOPAK [Concomitant]
     Indication: PRODUCT USED FOR UNKNOWN INDICATION
     Dates: start: 201910

REACTIONS (17)
  - Loss of consciousness [Unknown]
  - Gait inability [Unknown]
  - Road traffic accident [Unknown]
  - Hypersomnia [Unknown]
  - Renal disorder [Unknown]
  - Loss of consciousness [Recovered/Resolved with Sequelae]
  - Intensive care [Unknown]
  - Rash [Unknown]
  - Contusion [Unknown]
  - Pneumonia [Unknown]
  - Depression [Not Recovered/Not Resolved]
  - Pulmonary hypertension [Unknown]
  - Accident [Unknown]
  - Blood potassium decreased [Unknown]
  - Anxiety [Not Recovered/Not Resolved]
  - Cardiac failure congestive [Unknown]
  - Foot fracture [Unknown]

NARRATIVE: CASE EVENT DATE: 2010
